FAERS Safety Report 10856576 (Version 1)
Quarter: 2015Q1

REPORT INFORMATION
  Report Type: Spontaneous
  Country: US (occurrence: US)
  Receive Date: 20150223
  Receipt Date: 20150223
  Transmission Date: 20150721
  Serious: Yes (Other)
  Sender: FDA-Public Use
  Company Number: US-TEVA-541822USA

PATIENT
  Age: 37 Year
  Sex: Female

DRUGS (2)
  1. FLUOXETINE [Concomitant]
     Active Substance: FLUOXETINE\FLUOXETINE HYDROCHLORIDE
  2. COPAXONE [Suspect]
     Active Substance: GLATIRAMER ACETATE
     Indication: MULTIPLE SCLEROSIS
     Dates: start: 2014, end: 201412

REACTIONS (2)
  - Drug dose omission [Unknown]
  - Adverse event [Unknown]

NARRATIVE: CASE EVENT DATE: 201412
